FAERS Safety Report 8218601-1 (Version None)
Quarter: 2012Q1

REPORT INFORMATION
  Report Type: 
  Country: None (occurrence: None)
  Receive Date: 20120306
  Receipt Date: 20110404
  Transmission Date: 20120608
  Serious: Yes (Hospitalization)
  Sender: FDA-Public Use
  Company Number: US-006003

PATIENT
  Age: 51 Year
  Sex: Female

DRUGS (4)
  1. ADVAIR HFA [Concomitant]
  2. MULTIVITAMINS (ASCORBIC ACID; ERGOCALCIEROL, FOLIC ACID; NICOTINAMIDE; [Concomitant]
  3. ISOVUE-370 [Suspect]
     Indication: SENSATION OF PRESSURE
     Dosage: 100ML ONCE  INTRAVENOUS (NOT OTHERWISE SPECIFIED)
     Route: 042
     Dates: start: 20110316, end: 20110316
  4. ISOVUE-370 [Suspect]
     Indication: COMPUTERISED TOMOGRAM
     Dosage: 100ML ONCE  INTRAVENOUS (NOT OTHERWISE SPECIFIED)
     Route: 042
     Dates: start: 20110316, end: 20110316

REACTIONS (1)
  - HYPERSENSITIVITY [None]
